FAERS Safety Report 21756066 (Version 1)
Quarter: 2022Q4

REPORT INFORMATION
  Report Type: Spontaneous
  Country: US (occurrence: None)
  Receive Date: 20221219
  Receipt Date: 20221219
  Transmission Date: 20230113
  Serious: No
  Sender: FDA-Public Use
  Company Number: None

PATIENT
  Age: 73 Year
  Sex: Female
  Weight: 69.85 kg

DRUGS (16)
  1. CYCLOPHOSPHAMIDE [Suspect]
     Active Substance: CYCLOPHOSPHAMIDE
     Indication: Uterine cancer
     Dosage: FREQUENCY : DAILY;?
     Route: 048
     Dates: start: 202209
  2. ASPIRIN [Concomitant]
     Active Substance: ASPIRIN
  3. AMOLODIPINE [Concomitant]
  4. ATIVAN [Concomitant]
  5. V COMPLEX [Concomitant]
  6. BIOTIN [Concomitant]
  7. CALCIUM [Concomitant]
  8. CYCLOPHOSPHAMIDE [Concomitant]
  9. KEYTRUDA [Concomitant]
  10. MAGNESIUM [Concomitant]
     Active Substance: MAGNESIUM
  11. OMEPRAZOLE [Concomitant]
  12. POTASSIUM BICARB-CITRIC ACID [Concomitant]
  13. TRIAMTERENE-HCTZ [Concomitant]
  14. TYLENOL [Concomitant]
  15. VITAMIN D3 [Concomitant]
  16. ZOLPIDEM [Concomitant]

REACTIONS (2)
  - Neuropathy peripheral [None]
  - Joint swelling [None]
